FAERS Safety Report 14948023 (Version 2)
Quarter: 2018Q2

REPORT INFORMATION
  Report Type: Spontaneous
  Country: SI (occurrence: SI)
  Receive Date: 20180529
  Receipt Date: 20180613
  Transmission Date: 20180711
  Serious: Yes (Hospitalization)
  Sender: FDA-Public Use
  Company Number: PHHY2018SI006767

PATIENT
  Age: 73 Year
  Sex: Male

DRUGS (2)
  1. METHOTREXATE. [Suspect]
     Active Substance: METHOTREXATE
     Indication: RHEUMATOID ARTHRITIS
     Dosage: UNK
     Route: 065
  2. METHYLPREDNISOLONE. [Suspect]
     Active Substance: METHYLPREDNISOLONE
     Indication: RHEUMATOID ARTHRITIS
     Route: 065

REACTIONS (11)
  - Leukopenia [Recovering/Resolving]
  - Felty^s syndrome [Unknown]
  - Pancytopenia [Recovering/Resolving]
  - Abdominal pain [Unknown]
  - Chills [Recovering/Resolving]
  - Urinary retention [Unknown]
  - Prostatomegaly [Unknown]
  - Neutropenia [Unknown]
  - Benign prostatic hyperplasia [Unknown]
  - Weight decreased [Unknown]
  - Splenomegaly [Unknown]
